FAERS Safety Report 10358129 (Version 7)
Quarter: 2015Q1

REPORT INFORMATION
  Report Type: Spontaneous
  Country: US (occurrence: US)
  Receive Date: 20140801
  Receipt Date: 20150106
  Transmission Date: 20150720
  Serious: Yes (Hospitalization, Other)
  Sender: FDA-Public Use
  Company Number: US-JNJFOC-20140717110

PATIENT
  Age: 51 Year
  Sex: Female
  Weight: 74.84 kg

DRUGS (18)
  1. XARELTO [Concomitant]
     Active Substance: RIVAROXABAN
     Route: 065
  2. FLEXERIL [Concomitant]
     Active Substance: CYCLOBENZAPRINE HYDROCHLORIDE
     Indication: BACK PAIN
     Dosage: EVERY 4-6 HOURS
     Route: 048
  3. SEROQUEL [Concomitant]
     Active Substance: QUETIAPINE FUMARATE
     Indication: SLEEP DISORDER
     Dosage: EVERY 4-6 HOURS
     Route: 048
  4. METHADONE [Suspect]
     Active Substance: METHADONE HYDROCHLORIDE
     Indication: PRODUCT USED FOR UNKNOWN INDICATION
     Route: 065
  5. ADIPEX-P [Suspect]
     Active Substance: PHENTERMINE HYDROCHLORIDE
     Indication: PRODUCT USED FOR UNKNOWN INDICATION
  6. ZOFRAN [Concomitant]
     Active Substance: ONDANSETRON HYDROCHLORIDE
     Route: 065
  7. PHENERGAN [Concomitant]
     Active Substance: PROMETHAZINE HYDROCHLORIDE
     Indication: VOMITING
     Dosage: EVERY 4-6 HOURS
     Route: 065
  8. PROTONIX [Concomitant]
     Active Substance: PANTOPRAZOLE SODIUM
     Indication: PRODUCT USED FOR UNKNOWN INDICATION
     Route: 048
  9. METOPROLOL [Concomitant]
     Active Substance: METOPROLOL
     Route: 065
  10. NUCYNTA [Suspect]
     Active Substance: TAPENTADOL HYDROCHLORIDE
     Indication: BACK PAIN
     Dosage: EVERY 4-6 HOURS, AS NEEDED
     Route: 048
     Dates: start: 2013
  11. CYCLOBENZAPRINE [Concomitant]
     Active Substance: CYCLOBENZAPRINE
  12. GABAPENTIN. [Concomitant]
     Active Substance: GABAPENTIN
     Indication: BACK PAIN
     Dosage: EVERY 4-6 HOURS
     Route: 048
  13. WELLBUTRIN [Concomitant]
     Active Substance: BUPROPION HYDROCHLORIDE
     Indication: PRODUCT USED FOR UNKNOWN INDICATION
     Dosage: EVERY 4-6 HOURS
     Route: 048
  14. ABILIFY [Concomitant]
     Active Substance: ARIPIPRAZOLE
     Indication: PRODUCT USED FOR UNKNOWN INDICATION
     Dosage: DAILY
     Route: 048
  15. PCP [Suspect]
     Active Substance: PHENCYCLIDINE
     Indication: PRODUCT USED FOR UNKNOWN INDICATION
     Route: 065
  16. FLUOXETINE [Concomitant]
     Active Substance: FLUOXETINE\FLUOXETINE HYDROCHLORIDE
     Indication: HOT FLUSH
     Dosage: EVERY 4-6 HOURS
     Route: 048
  17. VITAMIN B12 [Concomitant]
     Active Substance: CYANOCOBALAMIN
     Indication: HYPOVITAMINOSIS
     Dosage: EVERY 4-6 HOURS
     Route: 058
  18. PAXIL [Concomitant]
     Active Substance: PAROXETINE HYDROCHLORIDE

REACTIONS (10)
  - Substance abuse [Unknown]
  - Pancreatic neoplasm [Not Recovered/Not Resolved]
  - Ileus [Unknown]
  - Chronic gastritis [Unknown]
  - Irritable bowel syndrome [Unknown]
  - Oesophagitis [Unknown]
  - Diverticulum intestinal [Unknown]
  - Adrenal adenoma [Unknown]
  - Anaemia [Unknown]
  - Chest pain [Unknown]

NARRATIVE: CASE EVENT DATE: 20140207
